FAERS Safety Report 9261209 (Version 1)
Quarter: 2013Q2

REPORT INFORMATION
  Report Type: Spontaneous
  Country: US (occurrence: US)
  Receive Date: 20130429
  Receipt Date: 20130429
  Transmission Date: 20140414
  Serious: No
  Sender: FDA-Public Use
  Company Number: US-AMGEN-USASP2012073747

PATIENT
  Age: 80 Year
  Sex: Female
  Weight: 72.56 kg

DRUGS (2)
  1. SENSIPAR [Suspect]
     Indication: HYPERPARATHYROIDISM SECONDARY
     Dosage: 30 MG, QD
     Route: 048
     Dates: start: 20120611, end: 20121101
  2. EPOGEN [Suspect]
     Indication: ANAEMIA
     Dosage: 2000 MUG, 2 TIMES/WK
     Route: 042
     Dates: start: 2007

REACTIONS (1)
  - Diarrhoea [Recovering/Resolving]
